FAERS Safety Report 17963160 (Version 1)
Quarter: 2020Q2

REPORT INFORMATION
  Report Type: Spontaneous
  Country: US (occurrence: US)
  Receive Date: 20200630
  Receipt Date: 20200630
  Transmission Date: 20200714
  Serious: Yes (Other)
  Sender: FDA-Public Use
  Company Number: US-PFIZER INC-2020250270

PATIENT
  Age: 31 Year
  Sex: Male

DRUGS (1)
  1. PRISTIQ EXTENDED-RELEASE [Suspect]
     Active Substance: DESVENLAFAXINE SUCCINATE
     Dosage: UNK
     Dates: end: 201907

REACTIONS (4)
  - Brain injury [Unknown]
  - Affective disorder [Unknown]
  - Obsessive-compulsive disorder [Unknown]
  - Aggression [Unknown]
